FAERS Safety Report 4531232-X (Version None)
Quarter: 2004Q4

REPORT INFORMATION
  Report Type: 
  Country: None (occurrence: None)
  Receive Date: 20041206
  Receipt Date: 20040913
  Transmission Date: 20050328
  Serious: No
  Sender: FDA-Public Use
  Company Number: US_0409105881

PATIENT
  Age: 56 Year
  Sex: Female
  Weight: 55 kg

DRUGS (6)
  1. CYMBALTA [Suspect]
     Indication: MAJOR DEPRESSION
     Dosage: 60 MG DAY
     Dates: start: 20040831
  2. VERAPAMIL HYDROCHLORIDE [Concomitant]
  3. LANSOPRAZOLE [Concomitant]
  4. TYLOX [Concomitant]
  5. XANAX (ALPRAZOLAM DUM) [Concomitant]
  6. ASPIRIN [Concomitant]

REACTIONS (7)
  - ASTHENIA [None]
  - DIARRHOEA [None]
  - FEELING ABNORMAL [None]
  - HEADACHE [None]
  - PARANASAL SINUS HYPERSECRETION [None]
  - STOMACH DISCOMFORT [None]
  - TENDERNESS [None]
